FAERS Safety Report 4714234-X (Version None)
Quarter: 2005Q2

REPORT INFORMATION
  Report Type: 
  Country: None (occurrence: None)
  Receive Date: 20050630
  Receipt Date: 20050419
  Transmission Date: 20051028
  Serious: Yes (Disabling)
  Sender: FDA-Public Use
  Company Number: USA020313088

PATIENT
  Age: 59 Year
  Sex: Female
  Weight: 105 kg

DRUGS (12)
  1. PROZAC [Suspect]
     Indication: DEPRESSION
     Dosage: 20 MG DAY
  2. HUMULIN R [Suspect]
     Indication: DIABETES MELLITUS
  3. HUMULIN L [Suspect]
     Indication: DIABETES MELLITUS
  4. HUMALOG [Suspect]
     Indication: DIABETES MELLITUS
  5. LASIX [Concomitant]
  6. COREG [Concomitant]
  7. ORUDIS [Concomitant]
  8. ZESTRIL [Concomitant]
  9. ALLOPURINOL [Concomitant]
  10. NIZORAL [Concomitant]
  11. LANTUS [Concomitant]
  12. REGULAR INSULIN [Concomitant]

REACTIONS (13)
  - ANKLE FRACTURE [None]
  - ARTHRITIS [None]
  - BLOOD GLUCOSE DECREASED [None]
  - BLOOD GLUCOSE INCREASED [None]
  - CARDIAC FAILURE CONGESTIVE [None]
  - DEPRESSION [None]
  - EMOTIONAL DISTRESS [None]
  - FATIGUE [None]
  - MALAISE [None]
  - NAUSEA [None]
  - OSTEOPOROSIS [None]
  - STRESS [None]
  - WEIGHT DECREASED [None]
